FAERS Safety Report 9112778 (Version 2)
Quarter: 2013Q1

REPORT INFORMATION
  Report Type: Spontaneous
  Country: US (occurrence: US)
  Receive Date: 20130211
  Receipt Date: 20130321
  Transmission Date: 20140127
  Serious: No
  Sender: FDA-Public Use
  Company Number: US-PFIZER INC-2013050928

PATIENT
  Age: 64 Year
  Sex: Female
  Weight: 65.31 kg

DRUGS (1)
  1. SUTENT [Suspect]
     Indication: RENAL CELL CARCINOMA
     Dosage: 12.5 MG, 3X/DAY
     Dates: start: 20130104

REACTIONS (2)
  - Alopecia [Unknown]
  - Hair colour changes [Unknown]
